FAERS Safety Report 16634806 (Version 1)
Quarter: 2019Q3

REPORT INFORMATION
  Report Type: Report from Study
  Country: US (occurrence: US)
  Receive Date: 20190726
  Receipt Date: 20190726
  Transmission Date: 20191004
  Serious: Yes (Hospitalization, Other)
  Sender: FDA-Public Use
  Company Number: US-BRISTOL-MYERS SQUIBB COMPANY-BMS-2019-072121

PATIENT
  Age: 56 Year
  Sex: Male
  Weight: 97 kg

DRUGS (2)
  1. NIVOLUMAB [Suspect]
     Active Substance: NIVOLUMAB
     Indication: NEOPLASM
     Dosage: 240 MILLIGRAM
     Route: 042
     Dates: start: 20190319, end: 20190319
  2. IPILIMUMAB [Suspect]
     Active Substance: IPILIMUMAB
     Indication: NEOPLASM
     Dosage: 1 MILLIGRAM/KILOGRAM
     Route: 042
     Dates: start: 20190319, end: 20190319

REACTIONS (3)
  - Pulmonary toxicity [Unknown]
  - Hypotension [Unknown]
  - Hypoxia [Unknown]

NARRATIVE: CASE EVENT DATE: 20190327
